FAERS Safety Report 10723193 (Version 3)
Quarter: 2015Q3

REPORT INFORMATION
  Report Type: Spontaneous
  Country: US (occurrence: US)
  Receive Date: 20150120
  Receipt Date: 20150710
  Transmission Date: 20151125
  Serious: No
  Sender: FDA-Public Use
  Company Number: US-PFIZER INC-2015019307

PATIENT
  Age: 56 Year
  Sex: Female
  Weight: 129 kg

DRUGS (5)
  1. GABAPENTIN. [Suspect]
     Active Substance: GABAPENTIN
     Indication: NEURALGIA
     Dosage: UNK
     Dates: start: 2013, end: 201410
  2. HYDROCODONE [Concomitant]
     Active Substance: HYDROCODONE
  3. LISINOPRIL. [Concomitant]
     Active Substance: LISINOPRIL
     Dosage: 5 MG, UNK
  4. CLONIDINE. [Concomitant]
     Active Substance: CLONIDINE
     Dosage: 1 MG, WEEKLY
     Route: 062
  5. VIVELLE-DOT [Concomitant]
     Active Substance: ESTRADIOL
     Indication: OESTROGEN REPLACEMENT THERAPY

REACTIONS (6)
  - Drug withdrawal syndrome [Unknown]
  - Arthralgia [Unknown]
  - Feeling abnormal [Unknown]
  - Drug ineffective [Unknown]
  - Pain in extremity [Unknown]
  - Myalgia [Unknown]
